FAERS Safety Report 4349028-0 (Version None)
Quarter: 2004Q2

REPORT INFORMATION
  Report Type: 
  Country: None (occurrence: None)
  Receive Date: 20040427
  Receipt Date: 20040427
  Transmission Date: 20050107
  Serious: Yes (Life-Threatening)
  Sender: FDA-Public Use
  Company Number: None

PATIENT
  Sex: Male

DRUGS (1)
  1. CLORAZEPATE -TRANSENE [Suspect]
     Indication: CONVULSION
     Dosage: 3.75 MG 3 DAILY
     Dates: start: 19970924

REACTIONS (3)
  - AGGRESSION [None]
  - FEAR [None]
  - PARANOIA [None]
